FAERS Safety Report 22081851 (Version 2)
Quarter: 2023Q2

REPORT INFORMATION
  Report Type: Spontaneous
  Country: US (occurrence: US)
  Receive Date: 20230310
  Receipt Date: 20230403
  Transmission Date: 20230722
  Serious: Yes (Other)
  Sender: FDA-Public Use
  Company Number: US-BAUSCHBL-2023BNL001772

PATIENT
  Age: 7 Year
  Sex: Female

DRUGS (6)
  1. LANOLIN\MINERAL OIL\PETROLATUM, WHITE [Suspect]
     Active Substance: LANOLIN\MINERAL OIL\PETROLATUM
     Indication: Dacryostenosis congenital
     Route: 065
  2. LANOLIN\MINERAL OIL\PETROLATUM, WHITE [Suspect]
     Active Substance: LANOLIN\MINERAL OIL\PETROLATUM
     Indication: Hypoaesthesia eye
  3. ERYTHROMYCIN [Suspect]
     Active Substance: ERYTHROMYCIN
     Indication: Dacryostenosis congenital
     Route: 065
  4. ERYTHROMYCIN [Suspect]
     Active Substance: ERYTHROMYCIN
     Indication: Hypoaesthesia eye
  5. CYCLOSPORINE [Suspect]
     Active Substance: CYCLOSPORINE
     Indication: Dacryostenosis congenital
     Route: 065
  6. CYCLOSPORINE [Suspect]
     Active Substance: CYCLOSPORINE
     Indication: Hypoaesthesia eye

REACTIONS (1)
  - Therapy non-responder [Unknown]
